FAERS Safety Report 7308775-9 (Version None)
Quarter: 2011Q1

REPORT INFORMATION
  Report Type: 
  Country: None (occurrence: None)
  Receive Date: 20110223
  Receipt Date: 20110214
  Transmission Date: 20110831
  Serious: Yes (Hospitalization)
  Sender: FDA-Public Use
  Company Number: LU-B.I. PHARMACEUTICALS,INC./RIDGEFIELD-2011-BL-00035BL

PATIENT

DRUGS (2)
  1. CONCOR [Suspect]
     Indication: HYPERTENSION
  2. MICARDIS [Suspect]
     Indication: HYPERTENSION

REACTIONS (2)
  - RENAL FAILURE ACUTE [None]
  - ATRIOVENTRICULAR BLOCK [None]
